FAERS Safety Report 10234772 (Version 1)
Quarter: 2014Q2

REPORT INFORMATION
  Report Type: Spontaneous
  Country: US (occurrence: None)
  Receive Date: 20140509
  Receipt Date: 20140509
  Transmission Date: 20141212
  Serious: Yes (Other)
  Sender: FDA-Public Use
  Company Number: VISP-PR-1312S-1006

PATIENT
  Sex: 0

DRUGS (2)
  1. VISIPAQUE (IODIXANOL) [Suspect]
     Indication: PRODUCT USED FOR UNKNOWN INDICATION
     Dosage: SINGLE DOSE
     Route: 042
     Dates: start: 20131223, end: 20131223
  2. VISIPAQUE (IODIXANOL) [Suspect]
     Indication: DIAGNOSTIC PROCEDURE
     Dosage: SINGLE DOSE
     Route: 042
     Dates: start: 20131223, end: 20131223

REACTIONS (2)
  - Pruritus [None]
  - Urticaria [None]
